FAERS Safety Report 11240437 (Version 3)
Quarter: 2016Q3

REPORT INFORMATION
  Report Type: Report from Study
  Country: US (occurrence: US)
  Receive Date: 20150706
  Receipt Date: 20160725
  Transmission Date: 20161109
  Serious: Yes (Hospitalization)
  Sender: FDA-Public Use
  Company Number: US-JNJFOC-20150702697

PATIENT
  Age: 75 Year
  Sex: Female
  Weight: 71.3 kg

DRUGS (1)
  1. USTEKINUMAB [Suspect]
     Active Substance: USTEKINUMAB
     Indication: PSORIASIS
     Route: 058
     Dates: start: 201002

REACTIONS (1)
  - Labyrinthitis [Unknown]

NARRATIVE: CASE EVENT DATE: 201406
